FAERS Safety Report 4698401-X (Version None)
Quarter: 2005Q2

REPORT INFORMATION
  Report Type: 
  Country: None (occurrence: None)
  Receive Date: 20050621
  Receipt Date: 20050616
  Transmission Date: 20051028
  Serious: Yes (Life-Threatening)
  Sender: FDA-Public Use
  Company Number: 214362

PATIENT
  Age: 79 Year
  Sex: Female

DRUGS (4)
  1. MABTHERA(RITUXIMAB) CONC FOR SOLUTION FOR INFUSION [Suspect]
     Indication: CHRONIC LYMPHOCYTIC LEUKAEMIA
     Dosage: 650 MG, INTRAVENOUS
     Route: 042
     Dates: start: 20050407, end: 20050414
  2. ACETAMINOPHEN [Concomitant]
  3. PHENERGAN [Concomitant]
  4. PREDNISONE [Concomitant]

REACTIONS (4)
  - CONDITION AGGRAVATED [None]
  - HAEMOGLOBIN DECREASED [None]
  - NEUTROPENIA [None]
  - URINARY TRACT INFECTION [None]
